FAERS Safety Report 19468228 (Version 2)
Quarter: 2021Q3

REPORT INFORMATION
  Report Type: Spontaneous
  Country: RS (occurrence: RS)
  Receive Date: 20210628
  Receipt Date: 20210706
  Transmission Date: 20211014
  Serious: Yes (Hospitalization, Other)
  Sender: FDA-Public Use
  Company Number: RS-GLAXOSMITHKLINE-RS2021EME135409

PATIENT
  Age: 37 Year
  Sex: Male

DRUGS (2)
  1. ELICEA [Concomitant]
     Active Substance: ESCITALOPRAM OXALATE
     Indication: DEPRESSION
     Dosage: UNK
  2. LAMICTAL [Suspect]
     Active Substance: LAMOTRIGINE
     Indication: EPILEPSY
     Dosage: UNK

REACTIONS (14)
  - Toxicity to various agents [Unknown]
  - Epidermolysis bullosa [Unknown]
  - Agitation [Unknown]
  - Respiratory failure [Recovered/Resolved]
  - Overdose [Unknown]
  - Disorientation [Recovered/Resolved]
  - Hypoxia [Recovered/Resolved]
  - Cerebral atrophy [Unknown]
  - Condition aggravated [Recovered/Resolved]
  - Nystagmus [Unknown]
  - Vitreous disorder [Unknown]
  - Pathologic myopia [Unknown]
  - Coma [Recovered/Resolved]
  - Cerebral dysgenesis [Unknown]
